FAERS Safety Report 4548870-0 (Version None)
Quarter: 2005Q1

REPORT INFORMATION
  Report Type: 
  Country: None (occurrence: None)
  Receive Date: 20041227
  Receipt Date: 20041004
  Transmission Date: 20050727
  Serious: No
  Sender: FDA-Public Use
  Company Number: 04P-163-0276023-00

PATIENT
  Age: 59 Year
  Sex: Female
  Weight: 108 kg

DRUGS (8)
  1. HUMIRA [Suspect]
     Indication: RHEUMATOID ARTHRITIS
     Dosage: 40 MG, 1 IN 2 WK, SUBCUTANEOUS
     Route: 058
     Dates: start: 20031101
  2. PREDNISONE [Concomitant]
  3. SIMVASTATIN [Concomitant]
  4. HYZAAR [Concomitant]
  5. WARFARIN SODIUM [Concomitant]
  6. LANSOPRAZOLE [Concomitant]
  7. CALCIUM GLUCONATE [Concomitant]
  8. SERETIDE MITE [Concomitant]

REACTIONS (1)
  - VISION BLURRED [None]
